FAERS Safety Report 10090716 (Version 1)
Quarter: 2014Q2

REPORT INFORMATION
  Report Type: Spontaneous
  Country: KR (occurrence: KR)
  Receive Date: 20140421
  Receipt Date: 20140421
  Transmission Date: 20141212
  Serious: Yes (Other)
  Sender: FDA-Public Use
  Company Number: PHHY2014KR045151

PATIENT
  Age: 52 Year
  Sex: Female

DRUGS (2)
  1. CARBOPLATIN [Suspect]
     Indication: OVARIAN CANCER STAGE III
     Dosage: 400 MG/M2, UNK
  2. PACLITAXEL [Suspect]
     Indication: OVARIAN CANCER STAGE III
     Dosage: 175 MG/M2, UNK

REACTIONS (5)
  - Sarcoidosis [Unknown]
  - Cough [Unknown]
  - Skin mass [Unknown]
  - Lymphadenopathy [Unknown]
  - Pulmonary hilar enlargement [Unknown]
